FAERS Safety Report 13884402 (Version 2)
Quarter: 2017Q3

REPORT INFORMATION
  Report Type: Spontaneous
  Country: US (occurrence: US)
  Receive Date: 20170821
  Receipt Date: 20170821
  Transmission Date: 20171127
  Serious: No
  Sender: FDA-Public Use
  Company Number: US-CIPLA LTD.-2016US21000

PATIENT

DRUGS (2)
  1. TERBINAFINE HYDROCHLORIDE. [Suspect]
     Active Substance: TERBINAFINE HYDROCHLORIDE
     Indication: ONYCHOMYCOSIS
     Dosage: 250 MG, QD, 1 TABLET
     Route: 048
     Dates: start: 20160902, end: 20161021
  2. FEMARA [Suspect]
     Active Substance: LETROZOLE
     Indication: BREAST CONSERVING SURGERY
     Dosage: UNK, PATIENT HAVE TO TAKE FOR 5 YEARS
     Route: 065

REACTIONS (1)
  - Ageusia [Not Recovered/Not Resolved]

NARRATIVE: CASE EVENT DATE: 20161013
